FAERS Safety Report 14220569 (Version 1)
Quarter: 2017Q4

REPORT INFORMATION
  Report Type: Spontaneous
  Country: FR (occurrence: FR)
  Receive Date: 20171124
  Receipt Date: 20171124
  Transmission Date: 20180321
  Serious: Yes (Hospitalization)
  Sender: FDA-Public Use
  Company Number: FR-ASTRAZENECA-2017SF18143

PATIENT
  Age: 761 Month
  Sex: Male

DRUGS (9)
  1. FLUINDIONE [Concomitant]
     Active Substance: FLUINDIONE
  2. BISOPROLOL [Concomitant]
     Active Substance: BISOPROLOL
  3. ATORVASTATIN [Concomitant]
     Active Substance: ATORVASTATIN
  4. PARACETAMOL [Concomitant]
     Active Substance: ACETAMINOPHEN
  5. RAMIPRIL. [Concomitant]
     Active Substance: RAMIPRIL
  6. ASPIRINE [Concomitant]
     Active Substance: ASPIRIN
  7. SPIRONOLACTONE. [Concomitant]
     Active Substance: SPIRONOLACTONE
  8. ZOLPIDEM [Concomitant]
     Active Substance: ZOLPIDEM\ZOLPIDEM TARTRATE
  9. INEXIUM [Suspect]
     Active Substance: ESOMEPRAZOLE
     Indication: ABDOMINAL PAIN UPPER
     Route: 048
     Dates: start: 201610, end: 201705

REACTIONS (1)
  - Thrombocytopenic purpura [Recovered/Resolved]

NARRATIVE: CASE EVENT DATE: 201704
